FAERS Safety Report 8939918 (Version 1)
Quarter: 2012Q4

REPORT INFORMATION
  Report Type: 
  Country: GR (occurrence: GR)
  Receive Date: 20121203
  Receipt Date: 20121203
  Transmission Date: 20130627
  Serious: Yes (Death, Hospitalization, Other)
  Sender: FDA-Public Use
  Company Number: GR-009507513-1211GRC012777

PATIENT
  Age: 72 Year
  Sex: Male
  Weight: 78 kg

DRUGS (16)
  1. DEXAMETHASONE [Suspect]
     Dosage: UNK
     Dates: start: 20101227
  2. DEXAMETHASONE [Suspect]
     Dosage: 12 mg
     Dates: start: 20110206, end: 20110215
  3. TEMOZOLOMIDE [Suspect]
     Indication: GLIOBLASTOMA
     Dosage: UNK, qd
     Route: 048
     Dates: start: 20101227, end: 20110209
  4. KEPPRA [Concomitant]
     Dosage: UNK
     Dates: start: 201010, end: 20110221
  5. EXFORGE [Concomitant]
     Dosage: 160 mg, UNK
     Dates: start: 201010, end: 20110225
  6. ONDANSETRON HYDROCHLORIDE [Concomitant]
     Dosage: 8 mg
     Dates: start: 20101227, end: 20110225
  7. OMEPRAZOLE [Concomitant]
     Dosage: 40 mg
     Dates: start: 20101227, end: 20110225
  8. GUTTALAX [Concomitant]
     Dosage: UNK
     Dates: end: 20110111
  9. GUTTALAX [Concomitant]
     Dosage: 10 mg
     Dates: start: 20110111, end: 20110209
  10. SOLOSA [Concomitant]
     Dosage: 6 mg
     Dates: start: 20110112, end: 20110210
  11. INSULIN [Concomitant]
     Dosage: 25 IU
     Dates: start: 20110112, end: 20110225
  12. SODIUM CHLORIDE [Concomitant]
     Dosage: 2 L
     Dates: start: 20110209, end: 20110225
  13. CARSIL [Concomitant]
     Dosage: UNK
     Dates: start: 20110210, end: 20110224
  14. ALBUMIN HUMAN [Concomitant]
     Dosage: 200 ml
     Dates: start: 20110211, end: 20110212
  15. ALBUMIN HUMAN [Concomitant]
     Dosage: 100 ml
     Dates: start: 20110213, end: 20110225
  16. NEXIUM [Concomitant]
     Dosage: 40 mg
     Dates: start: 20110210, end: 20110225

REACTIONS (3)
  - Bacteraemia [Fatal]
  - Oral fungal infection [Not Recovered/Not Resolved]
  - Pancytopenia [Not Recovered/Not Resolved]
